FAERS Safety Report 6964086-2 (Version None)
Quarter: 2010Q3

REPORT INFORMATION
  Report Type: 
  Country: None (occurrence: None)
  Receive Date: 20100831
  Receipt Date: 20100824
  Transmission Date: 20110219
  Serious: Yes (Hospitalization)
  Sender: FDA-Public Use
  Company Number: 2010SP044399

PATIENT
  Age: 56 Year
  Sex: Male

DRUGS (6)
  1. TEMODAL [Suspect]
     Indication: GLIOBLASTOMA
     Dosage: 160 MG
     Dates: start: 20100726, end: 20100810
  2. TEMODAL [Suspect]
     Indication: GLIOBLASTOMA
     Dosage: 160 MG
     Dates: start: 20100816
  3. PRISTIQ [Concomitant]
  4. LIPITOR [Concomitant]
  5. METOPROLOL TARTRATE [Concomitant]
  6. DEXAMETHASONE [Concomitant]

REACTIONS (6)
  - ANXIETY [None]
  - DYSGEUSIA [None]
  - MALAISE [None]
  - MOUTH ULCERATION [None]
  - NEURALGIA [None]
  - VOMITING [None]
